FAERS Safety Report 20518687 (Version 1)
Quarter: 2022Q1

REPORT INFORMATION
  Report Type: Spontaneous
  Country: GB (occurrence: GB)
  Receive Date: 20220225
  Receipt Date: 20220225
  Transmission Date: 20220424
  Serious: Yes (Other)
  Sender: FDA-Public Use
  Company Number: GB-009507513-2202PRT006628

PATIENT
  Age: 50 Year
  Sex: Male

DRUGS (2)
  1. PEGINTERFERON ALFA-2B [Suspect]
     Active Substance: PEGINTERFERON ALFA-2B
     Indication: Hepatitis C
     Dosage: UNK
  2. RIBAVIRIN [Concomitant]
     Active Substance: RIBAVIRIN
     Indication: Hepatitis C
     Dosage: UNK
     Route: 048

REACTIONS (1)
  - Glomerulonephritis membranous [Not Recovered/Not Resolved]
